FAERS Safety Report 9173865 (Version 1)
Quarter: 2013Q1

REPORT INFORMATION
  Report Type: Spontaneous
  Country: US (occurrence: US)
  Receive Date: 20130320
  Receipt Date: 20130320
  Transmission Date: 20140127
  Serious: Yes (Other)
  Sender: FDA-Public Use
  Company Number: US-BAYER-2013-031433

PATIENT
  Age: 71 Year
  Sex: Female

DRUGS (1)
  1. BAYER ASPIRIN REGIMEN ADULT LOW STRENGTH [Suspect]

REACTIONS (2)
  - Aortic aneurysm [Unknown]
  - Drug hypersensitivity [Unknown]
